FAERS Safety Report 5460140-5 (Version None)
Quarter: 2007Q3

REPORT INFORMATION
  Report Type: 
  Country: None (occurrence: None)
  Receive Date: 20070919
  Receipt Date: 20070709
  Transmission Date: 20080115
  Serious: Yes (Other)
  Sender: FDA-Public Use
  Company Number: US-ASTRAZENECA-2007UW12798

PATIENT
  Age: 46 Year
  Sex: Female

DRUGS (9)
  1. SEROQUEL [Suspect]
     Indication: DEPRESSION
     Route: 048
     Dates: start: 19991001
  2. SEROQUEL [Suspect]
     Indication: PSYCHOTIC DISORDER
     Route: 048
     Dates: start: 19991001
  3. SEROQUEL [Suspect]
     Indication: SCHIZOPHRENIA
     Route: 048
     Dates: start: 19991001
  4. RISPERDAL [Suspect]
     Indication: DEPRESSION
     Dates: start: 19950501, end: 19991001
  5. RISPERDAL [Suspect]
     Indication: PSYCHOTIC DISORDER
     Dates: start: 19950501, end: 19991001
  6. RISPERDAL [Suspect]
     Indication: SCHIZOPHRENIA
     Dates: start: 19950501, end: 19991001
  7. ZYPREXA [Concomitant]
     Indication: DEPRESSION
     Dates: start: 20000601, end: 20021101
  8. ZYPREXA [Concomitant]
     Indication: PSYCHOTIC DISORDER
     Dates: start: 20000601, end: 20021101
  9. ZYPREXA [Concomitant]
     Indication: SCHIZOPHRENIA
     Dates: start: 20000601, end: 20021101

REACTIONS (1)
  - TARDIVE DYSKINESIA [None]
